FAERS Safety Report 10007483 (Version 1)
Quarter: 2014Q1

REPORT INFORMATION
  Report Type: Spontaneous
  Country: PT (occurrence: None)
  Receive Date: 20140311
  Receipt Date: 20140311
  Transmission Date: 20141002
  Serious: Yes (Death, Life-Threatening)
  Sender: FDA-Public Use
  Company Number: FK201400588

PATIENT
  Age: 67 Year
  Sex: 0
  Weight: 80 kg

DRUGS (1)
  1. PROPOFOL 1% FRESENIUS (PROPOFOL) (PROPOFOL) [Suspect]
     Indication: INDUCTION OF ANAESTHESIA
     Route: 040
     Dates: start: 20140210, end: 20140210

REACTIONS (4)
  - Pneumonia [None]
  - Septic shock [None]
  - Acute respiratory distress syndrome [None]
  - Drug ineffective [None]
